FAERS Safety Report 25961862 (Version 1)
Quarter: 2025Q4

REPORT INFORMATION
  Report Type: Spontaneous
  Country: TM (occurrence: TM)
  Receive Date: 20251027
  Receipt Date: 20251027
  Transmission Date: 20260117
  Serious: No
  Sender: ANI
  Company Number: TM-ANIPHARMA-030982

PATIENT
  Age: 43 Year
  Sex: Male

DRUGS (4)
  1. FLUVOXAMINE MALEATE [Suspect]
     Active Substance: FLUVOXAMINE MALEATE
     Indication: Depression
  2. PERINDOPRIL ERBUMINE [Concomitant]
     Active Substance: PERINDOPRIL ERBUMINE
     Indication: Depression
  3. AMLODIPINE BESYLATE [Concomitant]
     Active Substance: AMLODIPINE BESYLATE
     Indication: Depression
  4. INDAPAMIDE [Concomitant]
     Active Substance: INDAPAMIDE
     Indication: Depression

REACTIONS (1)
  - Gynaecomastia [Unknown]
